FAERS Safety Report 5666457-3 (Version None)
Quarter: 2008Q1

REPORT INFORMATION
  Report Type: 
  Country: None (occurrence: None)
  Receive Date: 20080314
  Receipt Date: 20040930
  Transmission Date: 20080703
  Serious: No
  Sender: FDA-Public Use
  Company Number: US-ABBOTT-07P-163-0430616-00

PATIENT
  Age: 43 Year
  Sex: Female

DRUGS (2)
  1. HUMIRA [Suspect]
     Indication: RHEUMATOID ARTHRITIS
     Dates: start: 20040601
  2. HUMIRA [Suspect]
     Indication: SJOGREN'S SYNDROME

REACTIONS (2)
  - EMBOLISM VENOUS [None]
  - SOMNOLENCE [None]
